FAERS Safety Report 10928883 (Version 1)
Quarter: 2015Q1

REPORT INFORMATION
  Report Type: Spontaneous
  Country: US (occurrence: None)
  Receive Date: 20150318
  Receipt Date: 20150318
  Transmission Date: 20150721
  Serious: Yes (Life-Threatening, Hospitalization, Disabling)
  Sender: FDA-Public Use
  Company Number: None

PATIENT
  Age: 73 Year
  Sex: Male
  Weight: 68.04 kg

DRUGS (21)
  1. OMEGA-3 KRILL OIL [Concomitant]
  2. CLONIDINE HCL [Concomitant]
     Active Substance: CLONIDINE HYDROCHLORIDE
  3. DILTIAZEM [Concomitant]
     Active Substance: DILTIAZEM
  4. CLOPIDOGREL [Concomitant]
     Active Substance: CLOPIDOGREL BISULFATE
  5. METFORMIN HCL [Suspect]
     Active Substance: METFORMIN HYDROCHLORIDE
     Indication: GLUCOSE TOLERANCE IMPAIRED
     Dosage: 1 TABLET TWICE DAILY TWICE DAILY BY MOUTH
     Route: 048
     Dates: end: 20140727
  6. NON ASPRIN [Concomitant]
  7. BABY NON ASPRIN [Concomitant]
  8. ATORVASTATIN [Concomitant]
     Active Substance: ATORVASTATIN
  9. ISOSORBIDE MONONITRATE (IMDUR) [Concomitant]
  10. AMLODIPINE [Concomitant]
     Active Substance: AMLODIPINE BESYLATE
  11. HYDRALAZINE [Concomitant]
     Active Substance: HYDRALAZINE HYDROCHLORIDE
  12. FUROSEMIDE. [Concomitant]
     Active Substance: FUROSEMIDE
  13. AMLODIPINE BESYLATE. [Concomitant]
     Active Substance: AMLODIPINE BESYLATE
  14. METFORMIN HCL [Concomitant]
     Active Substance: METFORMIN HYDROCHLORIDE
  15. FERROUS FUMARATE [Concomitant]
     Active Substance: FERROUS FUMARATE
  16. CLONIDINE. [Concomitant]
     Active Substance: CLONIDINE
  17. IRON [Concomitant]
     Active Substance: IRON
  18. IRBESARTAN. [Concomitant]
     Active Substance: IRBESARTAN
  19. VITAMIN B12 [Concomitant]
     Active Substance: CYANOCOBALAMIN
  20. WARFARIN [Concomitant]
     Active Substance: WARFARIN
  21. DARBEPOETIN ALFA [Concomitant]
     Active Substance: DARBEPOETIN ALFA

REACTIONS (12)
  - Renal failure [None]
  - Dizziness [None]
  - Influenza like illness [None]
  - Transient ischaemic attack [None]
  - Loss of consciousness [None]
  - Lactic acidosis [None]
  - Hypotension [None]
  - Asthenia [None]
  - Dialysis [None]
  - Thrombosis [None]
  - Metabolic acidosis [None]
  - Syncope [None]

NARRATIVE: CASE EVENT DATE: 20140727
